FAERS Safety Report 8798991 (Version 3)
Quarter: 2013Q1

REPORT INFORMATION
  Report Type: Report from Study
  Country: GB (occurrence: GB)
  Receive Date: 20120920
  Receipt Date: 20130214
  Transmission Date: 20140127
  Serious: Yes (Other)
  Sender: FDA-Public Use
  Company Number: GB-ABBOTT-11P-167-0696666-00

PATIENT
  Age: 24 Year
  Sex: Female

DRUGS (6)
  1. RITONAVIR SOFT GELATIN CAPSULES [Suspect]
     Indication: ANTIRETROVIRAL THERAPY
     Route: 048
  2. EPZICOM [Suspect]
     Indication: ANTIRETROVIRAL THERAPY
     Dosage: DAILY
     Route: 048
  3. VIREAD [Suspect]
     Indication: ANTIRETROVIRAL THERAPY
     Dosage: DAILY
     Route: 048
  4. REYATAZ [Suspect]
     Indication: ANTIRETROVIRAL THERAPY
     Dosage: DAILY
     Route: 048
  5. ISENTRESS [Suspect]
     Indication: ANTIRETROVIRAL THERAPY
     Route: 048
  6. ZIDOVUDINE [Suspect]
     Indication: ANTIRETROVIRAL THERAPY
     Route: 042

REACTIONS (6)
  - Placenta praevia [Unknown]
  - Placental insufficiency [Unknown]
  - Premature labour [Recovered/Resolved]
  - Placental disorder [Unknown]
  - Pre-eclampsia [Unknown]
  - Drug intolerance [Unknown]
